FAERS Safety Report 7433200-7 (Version None)
Quarter: 2011Q2

REPORT INFORMATION
  Report Type: 
  Country: None (occurrence: None)
  Receive Date: 20110422
  Receipt Date: 20110415
  Transmission Date: 20111010
  Serious: No
  Sender: FDA-Public Use
  Company Number: US-B.I. PHARMACEUTICALS,INC./RIDGEFIELD-2010-BP-15263BP

PATIENT
  Sex: Male
  Weight: 109.77 kg

DRUGS (8)
  1. FLONASE [Concomitant]
  2. FINASTERIDE [Concomitant]
     Route: 048
  3. PRADAXA [Suspect]
     Indication: ATRIAL FIBRILLATION
     Dosage: 300 MG
     Route: 048
     Dates: start: 20101217, end: 20101219
  4. PRADAXA [Suspect]
     Dosage: 150 MG
     Route: 048
     Dates: start: 20101220
  5. DIOVAN [Concomitant]
     Indication: HYPERTENSION
     Dosage: 160 MG
     Route: 048
  6. HYDROCHORETS [Concomitant]
     Route: 048
  7. ZOCOR [Concomitant]
     Indication: BLOOD CHOLESTEROL INCREASED
     Dosage: 10 MG
     Route: 048
  8. HYDROCHLOROTHIAZIDE [Concomitant]
     Dosage: 25 MG

REACTIONS (2)
  - NASAL CONGESTION [None]
  - EPISTAXIS [None]
